FAERS Safety Report 11267111 (Version 1)
Quarter: 2015Q3

REPORT INFORMATION
  Report Type: Spontaneous
  Country: US (occurrence: US)
  Receive Date: 20150713
  Receipt Date: 20150713
  Transmission Date: 20151125
  Serious: No
  Sender: FDA-Public Use
  Company Number: US-009507513-1506USA011445

PATIENT
  Age: 18 Year
  Sex: Female
  Weight: 39.46 kg

DRUGS (1)
  1. NEXPLANON [Suspect]
     Active Substance: ETONOGESTREL
     Indication: CONTRACEPTION
     Dosage: 1 ROD/3 YEARS LEFT ARM
     Route: 059
     Dates: start: 20130304

REACTIONS (5)
  - Menstruation delayed [Recovered/Resolved]
  - Menstruation irregular [Unknown]
  - Expired product administered [Unknown]
  - Weight decreased [Unknown]
  - Menorrhagia [Unknown]

NARRATIVE: CASE EVENT DATE: 2013
